FAERS Safety Report 9145629 (Version 1)
Quarter: 2013Q1

REPORT INFORMATION
  Report Type: Spontaneous
  Country: US (occurrence: US)
  Receive Date: 20130307
  Receipt Date: 20130307
  Transmission Date: 20140127
  Serious: No
  Sender: FDA-Public Use
  Company Number: US-PFIZER INC-2013075054

PATIENT
  Age: 55 Year
  Sex: Female
  Weight: 125 kg

DRUGS (11)
  1. CAVERJECT [Suspect]
     Indication: ERECTILE DYSFUNCTION
     Dosage: 40 UG, UNK
  2. CAVERJECT [Suspect]
     Dosage: 80 UG, UNK
  3. METOPROLOL SUCCINATE [Concomitant]
     Indication: HYPERTENSION
     Dosage: 50 MG, 1X/DAY
  4. ATORVASTATIN [Concomitant]
     Indication: BLOOD CHOLESTEROL INCREASED
     Dosage: 20 MG, 1X/DAY
  5. ATORVASTATIN [Concomitant]
     Indication: HYPERTENSION
  6. LOSARTAN [Concomitant]
     Indication: HYPERTENSION
     Dosage: 100 MG, 1X/DAY
  7. LOSARTAN [Concomitant]
     Indication: CARDIAC DISORDER
  8. LOSARTAN [Concomitant]
     Indication: RENAL DISORDER
  9. HYDROCHLOROTHIAZIDE [Concomitant]
     Indication: HYPERTENSION
     Dosage: 20 MG, 1X/DAY
  10. NOVOLOG [Concomitant]
     Indication: TYPE 1 DIABETES MELLITUS
     Dosage: 45 IU, AS NEEDED
  11. LANTUS [Concomitant]
     Indication: TYPE 1 DIABETES MELLITUS
     Dosage: 100 IU, UNK

REACTIONS (2)
  - Drug ineffective [Unknown]
  - Drug effect decreased [Unknown]
